FAERS Safety Report 20184967 (Version 3)
Quarter: 2022Q1

REPORT INFORMATION
  Report Type: Report from Study
  Country: GR (occurrence: GR)
  Receive Date: 20211214
  Receipt Date: 20220221
  Transmission Date: 20220423
  Serious: Yes (Other)
  Sender: FDA-Public Use
  Company Number: GR-ABBVIE-21K-066-4195091-00

PATIENT
  Sex: Female
  Weight: 65 kg

DRUGS (6)
  1. CARBIDOPA\LEVODOPA [Suspect]
     Active Substance: CARBIDOPA\LEVODOPA
     Indication: Parkinson^s disease
     Dosage: MORNING DOSE: 10.1 ML CONTINUOUS RATE: 3.8 ML/H EXTRA DOSE: 2.9 ML (LL1 PUMP LOCK)
     Route: 050
     Dates: start: 20210126
  2. CARBIDOPA\LEVODOPA [Suspect]
     Active Substance: CARBIDOPA\LEVODOPA
     Dosage: MORNING DOSE: 10.1 ML CONTINUOUS RATE: 3.8 ML/H EXTRA DOSE: 2.9 ML (LL1 PUMP LOCK)
     Route: 050
  3. SYMMETREL [Concomitant]
     Active Substance: AMANTADINE HYDROCHLORIDE
     Indication: Parkinson^s disease
     Dosage: TWICE, DAILY (08:00 + 14:00)
     Route: 048
  4. PRAMIPEXOLE [Concomitant]
     Active Substance: PRAMIPEXOLE
     Indication: Parkinson^s disease
     Dosage: UNIT DOSE: 0.7MG, ONCE AT NIGHT WHEN PUMP SHUTS DOWN
     Route: 048
  5. STALEVO [Concomitant]
     Active Substance: CARBIDOPA\ENTACAPONE\LEVODOPA
     Indication: Parkinson^s disease
     Dosage: ONCE AT NIGHT WHEN PUMP SHUTS DOWN
     Route: 048
  6. ZOLOFT [Concomitant]
     Active Substance: SERTRALINE HYDROCHLORIDE
     Indication: Depression
     Dosage: 1 X 1 (AT NOON)
     Route: 048

REACTIONS (10)
  - Spinal cord compression [Not Recovered/Not Resolved]
  - Pain in extremity [Not Recovered/Not Resolved]
  - Scoliosis [Not Recovered/Not Resolved]
  - Cyst [Not Recovered/Not Resolved]
  - Mobility decreased [Not Recovered/Not Resolved]
  - Discomfort [Not Recovered/Not Resolved]
  - Intervertebral disc disorder [Not Recovered/Not Resolved]
  - Spinal pain [Unknown]
  - Stoma site discharge [Recovered/Resolved]
  - Stoma site pain [Not Recovered/Not Resolved]

NARRATIVE: CASE EVENT DATE: 20210101
